FAERS Safety Report 12779142 (Version 1)
Quarter: 2016Q3

REPORT INFORMATION
  Report Type: Spontaneous
  Country: US (occurrence: US)
  Receive Date: 20160919
  Receipt Date: 20160919
  Transmission Date: 20161109
  Serious: Yes (Hospitalization)
  Sender: FDA-Public Use
  Company Number: None

PATIENT
  Age: 83 Year
  Sex: Female
  Weight: 49.44 kg

DRUGS (1)
  1. NEXAVAR [Suspect]
     Active Substance: SORAFENIB
     Indication: THYROID CANCER
     Dosage: NEXAVAR 200MG - 2 TABS (400MG) - PO - TWICE DAILY
     Route: 048

REACTIONS (4)
  - Oropharyngeal pain [None]
  - Scab [None]
  - Diarrhoea [None]
  - Dry mouth [None]

NARRATIVE: CASE EVENT DATE: 20160610
